FAERS Safety Report 8048142-6 (Version None)
Quarter: 2012Q1

REPORT INFORMATION
  Report Type: 
  Country: None (occurrence: None)
  Receive Date: 20120117
  Receipt Date: 20120110
  Transmission Date: 20120608
  Serious: Yes (Disabling)
  Sender: FDA-Public Use
  Company Number: NO-JNJFOC-20120103314

PATIENT
  Sex: Male

DRUGS (5)
  1. ZYPREXA [Concomitant]
     Indication: SCHIZOPHRENIA
     Route: 048
  2. VALPROATE SODIUM [Suspect]
     Indication: EPILEPSY
     Route: 048
  3. TRILEPTAL [Suspect]
     Indication: EPILEPSY
     Dosage: 750 MG AND 650 MG DAILY
     Route: 048
  4. PAROXETINE HCL [Concomitant]
     Route: 048
  5. TOPAMAX [Suspect]
     Indication: PRODUCT USED FOR UNKNOWN INDICATION
     Route: 048

REACTIONS (3)
  - DYSPNOEA [None]
  - OXYGEN SATURATION DECREASED [None]
  - INTERSTITIAL LUNG DISEASE [None]
